FAERS Safety Report 7905880-0 (Version None)
Quarter: 2011Q4

REPORT INFORMATION
  Report Type: 
  Country: None (occurrence: None)
  Receive Date: 20111110
  Receipt Date: 20111107
  Transmission Date: 20120403
  Serious: No
  Sender: FDA-Public Use
  Company Number: US-PFIZER INC-2011273378

PATIENT
  Sex: Female
  Weight: 45 kg

DRUGS (4)
  1. PROCARDIA XL [Suspect]
     Indication: BLOOD PRESSURE ABNORMAL
     Dosage: 30 MG, 1X/DAY
     Route: 048
     Dates: start: 19920101
  2. PROCARDIA XL [Suspect]
     Dosage: 30 MG, 2X/DAY
     Route: 048
  3. IBUPROFEN (ADVIL) [Suspect]
     Indication: HEADACHE
     Dosage: 600 MG, AS NEEDED
     Route: 048
  4. PROCARDIA XL [Suspect]
     Dosage: 90 MG, DAILY
     Route: 048

REACTIONS (1)
  - ABDOMINAL DISCOMFORT [None]
